FAERS Safety Report 12195107 (Version 1)
Quarter: 2016Q1

REPORT INFORMATION
  Report Type: Spontaneous
  Country: FR (occurrence: FR)
  Receive Date: 20160321
  Receipt Date: 20160321
  Transmission Date: 20160526
  Serious: Yes (Hospitalization)
  Sender: FDA-Public Use
  Company Number: FR-PFIZER INC-2016163366

PATIENT
  Age: 59 Year
  Sex: Male

DRUGS (9)
  1. PARIET [Concomitant]
     Active Substance: RABEPRAZOLE SODIUM
     Dosage: UNK
  2. AERIUS [Concomitant]
     Active Substance: DESLORATADINE
     Dosage: UNK
  3. SIMVASTATIN. [Suspect]
     Active Substance: SIMVASTATIN
     Dosage: 20 MG, 1X/DAY
     Route: 048
  4. COVERSYL [Concomitant]
     Active Substance: PERINDOPRIL
     Dosage: UNK
  5. INSPRA [Concomitant]
     Active Substance: EPLERENONE
     Dosage: UNK
  6. CARDENSIEL [Concomitant]
     Active Substance: BISOPROLOL FUMARATE
     Dosage: UNK
  7. CORDARONE [Suspect]
     Active Substance: AMIODARONE HYDROCHLORIDE
     Dosage: 200 MG, 1X/DAY
     Route: 048
  8. PREVISCAN [Suspect]
     Active Substance: FLUINDIONE
     Dosage: 20 MG FOR EVEN DAYS AND UNSPECIFIED DOSE FOR ODD DAYS
     Route: 048
  9. PREVISCAN [Suspect]
     Active Substance: FLUINDIONE
     Dosage: 20 MG, DAILY
     Route: 048
     Dates: start: 20160126

REACTIONS (1)
  - International normalised ratio increased [Recovering/Resolving]

NARRATIVE: CASE EVENT DATE: 201602
